FAERS Safety Report 18278994 (Version 1)
Quarter: 2020Q3

REPORT INFORMATION
  Report Type: Spontaneous
  Country: CZ (occurrence: CZ)
  Receive Date: 20200917
  Receipt Date: 20200917
  Transmission Date: 20201103
  Serious: Yes (Other)
  Sender: FDA-Public Use
  Company Number: CZ-IBIGEN-2020.09299

PATIENT
  Age: 24 Year
  Sex: Male

DRUGS (20)
  1. LEVOFLOXACIN. [Suspect]
     Active Substance: LEVOFLOXACIN
     Indication: PNEUMONIA
     Dosage: UNK ()
  2. METRONIDAZOLE. [Suspect]
     Active Substance: METRONIDAZOLE
     Indication: ABDOMINAL SEPSIS
     Dosage: UNK ()
  3. DEXAMETHASONE. [Suspect]
     Active Substance: DEXAMETHASONE
     Indication: CHEMOTHERAPY
     Dosage: 10 MG/M2 (DAYS 1 TO 7)
     Route: 048
  4. PIPERACILLIN AND TAZOBACTAM [Suspect]
     Active Substance: PIPERACILLIN SODIUM\TAZOBACTAM SODIUM
     Indication: PNEUMONIA
     Dosage: UNK ()
  5. AMIKACIN SULFATE. [Suspect]
     Active Substance: AMIKACIN SULFATE
     Indication: SEPTIC SHOCK
     Dosage: UNK ()
  6. CIPROFLOXACIN. [Suspect]
     Active Substance: CIPROFLOXACIN
     Indication: ANTIBIOTIC THERAPY
     Dosage: UNK ()
  7. TRIAZOL [Concomitant]
     Indication: ANTIBIOTIC PROPHYLAXIS
     Dosage: UNK ()
  8. METHOTREXATE. [Suspect]
     Active Substance: METHOTREXATE
     Indication: CHEMOTHERAPY
     Dosage: 15 MG (DAY 6)
     Route: 037
  9. CEFTAZIDIME. [Suspect]
     Active Substance: CEFTAZIDIME
     Indication: ABDOMINAL SEPSIS
     Dosage: UNK ()
  10. TRIMETHOPRIM + SULFAMETHOXAZOLE [Suspect]
     Active Substance: SULFAMETHOXAZOLE\TRIMETHOPRIM
     Indication: ANTIBIOTIC PROPHYLAXIS
     Dosage: UNK ()
  11. AMIKACIN SULFATE. [Suspect]
     Active Substance: AMIKACIN SULFATE
     Indication: SEPTIC SHOCK
     Dosage: UNK ()
  12. VANCOMYCIN [Suspect]
     Active Substance: VANCOMYCIN
     Indication: SEPTIC SHOCK
     Dosage: UNK ()
  13. IDARUBICIN [Suspect]
     Active Substance: IDARUBICIN
     Indication: CHEMOTHERAPY
     Dosage: 12 MG/M2, (DAYS 6, 7, 13, 14)
     Route: 042
  14. VALACICLOVIR [Concomitant]
     Active Substance: VALACYCLOVIR HYDROCHLORIDE
     Indication: ANTIBIOTIC PROPHYLAXIS
     Dosage: UNK ()
  15. VANCOMYCIN [Suspect]
     Active Substance: VANCOMYCIN
     Indication: SEPTIC SHOCK
     Dosage: UNK ()
  16. METRONIDAZOLE. [Suspect]
     Active Substance: METRONIDAZOLE
     Indication: ABDOMINAL SEPSIS
     Dosage: UNK ()
  17. CYCLOPHOSPHAMIDE. [Suspect]
     Active Substance: CYCLOPHOSPHAMIDE
     Indication: CHEMOTHERAPY
     Dosage: 200 MG/M2 (DAYS 3 TO 5)
     Route: 042
  18. CEFTAZIDIME. [Suspect]
     Active Substance: CEFTAZIDIME
     Indication: ABDOMINAL SEPSIS
     Dosage: UNK ()
  19. PEG/L?ASPARAGINASE [Suspect]
     Active Substance: PEGASPARGASE
     Indication: CHEMOTHERAPY
     Dosage: 2,000 U/M2 (DAY 20) ()
     Route: 042
  20. VINCRISTINE [Suspect]
     Active Substance: VINCRISTINE
     Indication: CHEMOTHERAPY
     Dosage: 2 MG
     Route: 042

REACTIONS (23)
  - Abdominal pain [Recovered/Resolved]
  - Diarrhoea [Recovered/Resolved]
  - Septic shock [Recovered/Resolved]
  - Agranulocytosis [Recovered/Resolved]
  - Drug ineffective [Unknown]
  - Pleural effusion [Recovered/Resolved]
  - Circulatory collapse [Recovered/Resolved]
  - Tumour lysis syndrome [Recovered/Resolved]
  - Escherichia infection [Recovered/Resolved]
  - Neutropenia [Recovered/Resolved]
  - Klebsiella infection [Recovered/Resolved]
  - Multiple-drug resistance [Unknown]
  - Ileus paralytic [Recovered/Resolved]
  - Abdominal sepsis [Recovered/Resolved]
  - Dyspnoea [Recovered/Resolved]
  - Pyrexia [Recovered/Resolved]
  - Pseudomonas infection [Recovered/Resolved]
  - Pneumonia [Recovered/Resolved]
  - C-reactive protein increased [Recovered/Resolved]
  - Gastrointestinal inflammation [Recovered/Resolved]
  - Respiratory failure [Recovered/Resolved]
  - Pathogen resistance [Unknown]
  - Multiple organ dysfunction syndrome [Recovered/Resolved]
